FAERS Safety Report 5726225-0 (Version None)
Quarter: 2008Q2

REPORT INFORMATION
  Report Type: 
  Country: None (occurrence: None)
  Receive Date: 20080502
  Receipt Date: 20080326
  Transmission Date: 20081010
  Serious: No
  Sender: FDA-Public Use
  Company Number: US-BAYER-200610481BWH

PATIENT
  Age: 48 Year
  Sex: Male
  Weight: 68 kg

DRUGS (6)
  1. SORAFENIB [Suspect]
     Indication: METASTATIC RENAL CELL CARCINOMA
     Dosage: TOTAL DAILY DOSE: 800 MG  UNIT DOSE: 200 MG
     Route: 048
     Dates: start: 20050101
  2. SORAFENIB [Suspect]
     Dosage: TOTAL DAILY DOSE: 1600 MG  UNIT DOSE: 200 MG
     Route: 048
  3. NORVASC [Concomitant]
  4. LOPRESSOR [Concomitant]
  5. TYLENOL [Concomitant]
  6. NASACORT [Concomitant]

REACTIONS (6)
  - ALOPECIA [None]
  - DIARRHOEA [None]
  - ERYTHEMA [None]
  - FUNGAL INFECTION [None]
  - SCROTAL IRRITATION [None]
  - SKIN LESION [None]
